FAERS Safety Report 14320147 (Version 1)
Quarter: 2017Q4

REPORT INFORMATION
  Report Type: Spontaneous
  Country: US (occurrence: US)
  Receive Date: 20171222
  Receipt Date: 20171222
  Transmission Date: 20180321
  Serious: No
  Sender: FDA-Public Use
  Company Number: None

PATIENT
  Age: 21 Year
  Sex: Female

DRUGS (1)
  1. MAKENA [Suspect]
     Active Substance: HYDROXYPROGESTERONE CAPROATE
     Indication: PRODUCT USED FOR UNKNOWN INDICATION
     Route: 030
     Dates: start: 201708, end: 201710

REACTIONS (5)
  - Injection site reaction [None]
  - Injection site bruising [None]
  - Injection site swelling [None]
  - Therapy cessation [None]
  - Injection site irritation [None]

NARRATIVE: CASE EVENT DATE: 201710
